FAERS Safety Report 9027995 (Version 1)
Quarter: 2013Q1

REPORT INFORMATION
  Report Type: Spontaneous
  Country: US (occurrence: None)
  Receive Date: 20130114
  Receipt Date: 20130114
  Transmission Date: 20140127
  Serious: Yes (Other)
  Sender: FDA-Public Use
  Company Number: None

PATIENT
  Sex: Female
  Weight: 72.58 kg

DRUGS (1)
  1. LIDOCAINE [Suspect]
     Indication: INGROWING NAIL
     Dosage: 3CC - 2% 1 INJECTION
     Dates: start: 20120524

REACTIONS (4)
  - Palpitations [None]
  - Flushing [None]
  - Anxiety [None]
  - Tremor [None]
